FAERS Safety Report 9904463 (Version 2)
Quarter: 2015Q1

REPORT INFORMATION
  Report Type: Report from Study
  Country: TR (occurrence: TR)
  Receive Date: 20140218
  Receipt Date: 20150220
  Transmission Date: 20150721
  Serious: Yes (Other)
  Sender: FDA-Public Use
  Company Number: TR-JNJFOC-20140208249

PATIENT
  Age: 4 Decade
  Sex: Female

DRUGS (2)
  1. SIMPONI [Suspect]
     Active Substance: GOLIMUMAB
     Indication: ANKYLOSING SPONDYLITIS
     Route: 058
     Dates: start: 20130904, end: 20140112
  2. DICLOFENAC [Suspect]
     Active Substance: DICLOFENAC
     Indication: LABOUR PAIN
     Route: 048
     Dates: start: 20140701

REACTIONS (2)
  - Pain [Unknown]
  - Exposure during pregnancy [Unknown]
